FAERS Safety Report 4824977-5 (Version None)
Quarter: 2005Q4

REPORT INFORMATION
  Report Type: 
  Country: None (occurrence: None)
  Receive Date: 20051110
  Receipt Date: 20050412
  Transmission Date: 20060501
  Serious: Yes (Hospitalization)
  Sender: FDA-Public Use
  Company Number: US-MERCK-0504USA02136

PATIENT
  Age: 61 Year
  Sex: Male
  Weight: 77 kg

DRUGS (2)
  1. VIOXX [Suspect]
     Indication: BACK PAIN
     Route: 048
     Dates: start: 20000509, end: 20030323
  2. TYLENOL (CAPLET) [Concomitant]
     Indication: BACK PAIN
     Route: 065
     Dates: start: 20000101, end: 20030101

REACTIONS (2)
  - ANGINA UNSTABLE [None]
  - CEREBROVASCULAR ACCIDENT [None]
